FAERS Safety Report 18337805 (Version 1)
Quarter: 2020Q4

REPORT INFORMATION
  Report Type: Spontaneous
  Country: CA (occurrence: CA)
  Receive Date: 20201002
  Receipt Date: 20201002
  Transmission Date: 20210113
  Serious: Yes (Death)
  Sender: FDA-Public Use
  Company Number: CA-TEVA-2020-CA-1833851

PATIENT
  Age: 49 Year
  Sex: Male
  Weight: 64 kg

DRUGS (17)
  1. ASCORBIC ACID. [Concomitant]
     Active Substance: ASCORBIC ACID
  2. DIGOXIN. [Concomitant]
     Active Substance: DIGOXIN
  3. PANTOPRAZOLE [Concomitant]
     Active Substance: PANTOPRAZOLE
  4. VITAMIN D [Concomitant]
     Active Substance: VITAMIN D NOS
  5. ASA [Concomitant]
     Active Substance: ASPIRIN
  6. MYCOPHENOLATE MOFETIL. [Concomitant]
     Active Substance: MYCOPHENOLATE MOFETIL
  7. DOMPERIDONE [Concomitant]
     Active Substance: DOMPERIDONE
  8. FAMOTIDINE. [Concomitant]
     Active Substance: FAMOTIDINE
  9. FUROSEMIDE. [Concomitant]
     Active Substance: FUROSEMIDE
  10. IPRATROPIUM [Concomitant]
     Active Substance: IPRATROPIUM
  11. SILDENAFIL CITRATE. [Suspect]
     Active Substance: SILDENAFIL CITRATE
     Dosage: 60 MILLIGRAM DAILY;
     Route: 048
  12. CYANOCOBALAMIN. [Concomitant]
     Active Substance: CYANOCOBALAMIN
  13. LANSOPRAZOLE. [Concomitant]
     Active Substance: LANSOPRAZOLE
  14. DEXILANT [Concomitant]
     Active Substance: DEXLANSOPRAZOLE
  15. TINZAPARIN [Concomitant]
     Active Substance: TINZAPARIN
  16. METOPROLOL. [Concomitant]
     Active Substance: METOPROLOL
  17. SULFAMETHOXAZOLE [Concomitant]
     Active Substance: SULFAMETHOXAZOLE

REACTIONS (1)
  - Death [Fatal]
